FAERS Safety Report 6871296-1 (Version None)
Quarter: 2010Q3

REPORT INFORMATION
  Report Type: 
  Country: None (occurrence: None)
  Receive Date: 20100723
  Receipt Date: 20100713
  Transmission Date: 20110219
  Serious: Yes (Death, Other)
  Sender: FDA-Public Use
  Company Number: US-ABBOTT-10P-163-0657088-00

PATIENT
  Sex: Male
  Weight: 90.8 kg

DRUGS (3)
  1. VICODIN [Suspect]
     Indication: DIABETIC NEUROPATHY
     Route: 048
  2. NEURONTIN [Suspect]
     Indication: DIABETIC NEUROPATHY
     Route: 048
  3. METFORMIN HCL [Suspect]
     Indication: DIABETES MELLITUS

REACTIONS (2)
  - LIVER DISORDER [None]
  - RENAL FAILURE [None]
